FAERS Safety Report 9797477 (Version 2)
Quarter: 2014Q1

REPORT INFORMATION
  Report Type: Report from Study
  Country: PL (occurrence: PL)
  Receive Date: 20140106
  Receipt Date: 20140106
  Transmission Date: 20141002
  Serious: Yes (Hospitalization)
  Sender: FDA-Public Use
  Company Number: PHHO2012PL012538

PATIENT
  Sex: 0

DRUGS (8)
  1. SOM230 [Suspect]
     Indication: ACROMEGALY
     Dosage: UNK
     Route: 030
     Dates: start: 20120111
  2. SANDOSTATIN LAR [Suspect]
     Indication: ACROMEGALY
     Dosage: 30 MG MONTHLY
     Dates: start: 20110701
  3. EUTHYROX [Concomitant]
     Indication: HYPOTHYROIDISM
     Dosage: 100 MG, UNK
     Route: 048
     Dates: start: 2001
  4. AMLOZEK [Concomitant]
     Indication: HYPERTENSION
     Dosage: 10 MG, ONCE/SINGLE
     Dates: start: 2001
  5. HYDROCORTISONE [Concomitant]
     Indication: HYPOPITUITARISM
     Dosage: 20 MG, ONCE/SINGLE
     Dates: start: 2001
  6. TRITACE [Concomitant]
     Indication: HYPERTENSION
     Dosage: 10 MG, ONCE/SINGLE
     Dates: start: 2001
  7. GLUCOPHAGE [Concomitant]
  8. KALDYUM [Concomitant]
     Indication: HYPOPITUITARISM
     Dosage: 30 MEQ, ONCE/SINGLE
     Dates: start: 2001

REACTIONS (1)
  - Diabetes mellitus [Recovering/Resolving]
